FAERS Safety Report 8293467-2 (Version None)
Quarter: 2012Q2

REPORT INFORMATION
  Report Type: 
  Country: None (occurrence: None)
  Receive Date: 20120417
  Receipt Date: 20120404
  Transmission Date: 20120825
  Serious: Yes (Other)
  Sender: FDA-Public Use
  Company Number: DE-MYLANLABS-2012S1007390

PATIENT
  Age: 6 Year
  Sex: Female

DRUGS (5)
  1. VALPROIC ACID [Suspect]
     Indication: EPILEPSY
     Route: 065
  2. ETHOSUXIMIDE [Concomitant]
     Indication: EPILEPSY
     Route: 065
  3. LYRICA [Concomitant]
     Indication: EPILEPSY
     Route: 065
  4. ZONISAMIDE [Suspect]
     Indication: EPILEPSY
     Dosage: 7.5 MG/KG
     Route: 065
  5. LEVETIRACETAM [Concomitant]
     Indication: EPILEPSY
     Route: 065

REACTIONS (1)
  - CALCULUS URINARY [None]
